FAERS Safety Report 4349805-6 (Version None)
Quarter: 2004Q2

REPORT INFORMATION
  Report Type: 
  Country: None (occurrence: None)
  Receive Date: 20040428
  Receipt Date: 20040428
  Transmission Date: 20050107
  Serious: No
  Sender: FDA-Public Use
  Company Number: None

PATIENT
  Age: 76 Year
  Sex: Male
  Weight: 60 kg

DRUGS (2)
  1. VANCOMYCIN [Suspect]
     Indication: BACTERAEMIA
     Dosage: 1 GM Q 24
     Dates: start: 20040420
  2. NS 0.9% 250 ML B BRAUN [Suspect]
     Indication: BACTERAEMIA
     Dosage: 1 GM Q 24
     Dates: start: 20040420

REACTIONS (1)
  - HEARING IMPAIRED [None]
